FAERS Safety Report 5974647-5 (Version None)
Quarter: 2008Q4

REPORT INFORMATION
  Report Type: 
  Country: None (occurrence: None)
  Receive Date: 20081201
  Receipt Date: 20081125
  Transmission Date: 20090506
  Serious: Yes (Hospitalization, Other)
  Sender: FDA-Public Use
  Company Number: ES-PFIZER INC-2008100266

PATIENT
  Sex: Female

DRUGS (1)
  1. LYRICA [Suspect]
     Indication: GENERALISED ANXIETY DISORDER
     Route: 048

REACTIONS (4)
  - CARDIAC DISORDER [None]
  - CARDIO-RESPIRATORY ARREST [None]
  - INCORRECT DOSE ADMINISTERED [None]
  - MYOCLONIC EPILEPSY [None]
